FAERS Safety Report 5748348-2 (Version None)
Quarter: 2008Q2

REPORT INFORMATION
  Report Type: 
  Country: None (occurrence: None)
  Receive Date: 20080523
  Receipt Date: 20080517
  Transmission Date: 20081010
  Serious: Yes (Other)
  Sender: FDA-Public Use
  Company Number: US-PFIZER INC-2008029482

PATIENT
  Sex: Female
  Weight: 54.545 kg

DRUGS (10)
  1. LIPITOR [Suspect]
     Indication: BLOOD CHOLESTEROL INCREASED
  2. ZETIA [Concomitant]
  3. VYTORIN [Concomitant]
  4. CRESTOR [Concomitant]
  5. EFFEXOR [Concomitant]
  6. METFORMIN HCL [Concomitant]
  7. ACETYLSALICYLIC ACID SRT [Concomitant]
  8. PLAVIX [Concomitant]
  9. NIACIN [Concomitant]
  10. COREG [Concomitant]

REACTIONS (3)
  - BLOOD PRESSURE INCREASED [None]
  - CHOKING [None]
  - DYSPNOEA [None]
